APPROVED DRUG PRODUCT: NORCEPT-E 1/35 28
Active Ingredient: ETHINYL ESTRADIOL; NORETHINDRONE
Strength: 0.035MG;1MG
Dosage Form/Route: TABLET;ORAL-28
Application: A071546 | Product #001
Applicant: ORTHO MCNEIL PHARMACEUTICAL INC
Approved: Feb 9, 1989 | RLD: No | RS: No | Type: DISCN